FAERS Safety Report 9370263 (Version 2)
Quarter: 2013Q4

REPORT INFORMATION
  Report Type: Report from Study
  Country: US (occurrence: US)
  Receive Date: 20130626
  Receipt Date: 20131018
  Transmission Date: 20140711
  Serious: Yes (Hospitalization)
  Sender: FDA-Public Use
  Company Number: US-UCBSA-090237

PATIENT
  Age: 53 Year
  Sex: Male
  Weight: 94.9 kg

DRUGS (2)
  1. CIMZIA [Suspect]
     Indication: CROHN^S DISEASE
     Route: 058
     Dates: start: 20110427, end: 20111026
  2. ACETAMINOPHEN [Concomitant]
     Indication: CROHN^S DISEASE

REACTIONS (1)
  - Gastrointestinal haemorrhage [Recovered/Resolved]
